FAERS Safety Report 5630021-2 (Version None)
Quarter: 2008Q1

REPORT INFORMATION
  Report Type: 
  Country: None (occurrence: None)
  Receive Date: 20080214
  Receipt Date: 20080204
  Transmission Date: 20080703
  Serious: Yes (Hospitalization)
  Sender: FDA-Public Use
  Company Number: 2008BI001660

PATIENT
  Age: 24 Year
  Sex: Female

DRUGS (1)
  1. TYSABRI [Suspect]
     Indication: MULTIPLE SCLEROSIS
     Dosage: 300 MG; QM; IV
     Dates: start: 20060901, end: 20071201

REACTIONS (5)
  - ACUTE TONSILLITIS [None]
  - ANAEMIA [None]
  - CONDITION AGGRAVATED [None]
  - ENDOCARDITIS [None]
  - MITRAL VALVE INCOMPETENCE [None]
